FAERS Safety Report 7142100-1 (Version None)
Quarter: 2010Q4

REPORT INFORMATION
  Report Type: 
  Country: None (occurrence: None)
  Receive Date: 20101203
  Receipt Date: 20101203
  Transmission Date: 20110411
  Serious: Yes (Other)
  Sender: FDA-Public Use
  Company Number: None

PATIENT
  Age: 6 Year
  Sex: Female
  Weight: 61.6892 kg

DRUGS (4)
  1. PROPOXYPHENE HCL AND ACETAMINOPHEN [Suspect]
     Indication: ARTHRALGIA
     Dosage: 100-650MGTEV AS NEEDED PO
     Route: 048
     Dates: start: 20060417, end: 20101120
  2. PROPOXYPHENE HCL AND ACETAMINOPHEN [Suspect]
     Indication: BACK PAIN
     Dosage: 100-650MGTEV AS NEEDED PO
     Route: 048
     Dates: start: 20060417, end: 20101120
  3. PROPOXYPHENE HCL AND ACETAMINOPHEN [Suspect]
     Indication: NECK PAIN
     Dosage: 100-650MGTEV AS NEEDED PO
     Route: 048
     Dates: start: 20060417, end: 20101120
  4. PROPOXYPHENE HCL AND ACETAMINOPHEN [Suspect]
     Indication: PAIN IN EXTREMITY
     Dosage: 100-650MGTEV AS NEEDED PO
     Route: 048
     Dates: start: 20060417, end: 20101120

REACTIONS (4)
  - DIZZINESS [None]
  - HIP ARTHROPLASTY [None]
  - INTERVERTEBRAL DISC DISORDER [None]
  - PALPITATIONS [None]
